FAERS Safety Report 16483176 (Version 1)
Quarter: 2019Q2

REPORT INFORMATION
  Report Type: Report from Study
  Country: CH (occurrence: CH)
  Receive Date: 20190627
  Receipt Date: 20190627
  Transmission Date: 20190711
  Serious: Yes (Hospitalization)
  Sender: FDA-Public Use
  Company Number: CH-ROCHE-2342098

PATIENT
  Age: 59 Year
  Sex: Male
  Weight: 84 kg

DRUGS (17)
  1. ATEZOLIZUMAB. [Suspect]
     Active Substance: ATEZOLIZUMAB
     Indication: COLORECTAL CANCER
     Dosage: LAST DOSE: 27/JUN/2018
     Route: 042
     Dates: start: 20180517
  2. NOVALGIN (METAMIZOLE SODIUM) [Concomitant]
     Active Substance: METAMIZOLE SODIUM
     Route: 065
     Dates: start: 20180627, end: 20180808
  3. MEPIVACAINE [Concomitant]
     Active Substance: MEPIVACAINE\MEPIVACAINE HYDROCHLORIDE
     Route: 065
     Dates: start: 20180613, end: 20180620
  4. RESYL PLUS [Concomitant]
     Active Substance: CODEINE PHOSPHATE\GUAIFENESIN
     Route: 065
     Dates: start: 20180705, end: 20180713
  5. CLEXANE [Concomitant]
     Active Substance: ENOXAPARIN SODIUM
     Route: 065
     Dates: start: 20180628, end: 20180805
  6. NITRODERM [Concomitant]
     Active Substance: NITROGLYCERIN
     Route: 065
     Dates: start: 20180625, end: 20180626
  7. XYZAL [Concomitant]
     Active Substance: LEVOCETIRIZINE DIHYDROCHLORIDE
     Route: 065
     Dates: start: 20180522, end: 20180522
  8. TALIMOGENE LAHERPAREPVEC [Suspect]
     Active Substance: TALIMOGENE LAHERPAREPVEC
     Indication: COLORECTAL CANCER
     Dosage: LAST DOSE: 27/JUN/2018
     Route: 026
     Dates: start: 20180517, end: 20180627
  9. PARAGOL [Concomitant]
     Active Substance: MINERAL OIL\PHENOLPHTHALEIN
     Route: 065
     Dates: start: 20180530, end: 20180602
  10. LIDOCAIN [LIDOCAINE] [Concomitant]
     Route: 065
     Dates: start: 20180517, end: 20180627
  11. DAFALGAN [Concomitant]
     Active Substance: ACETAMINOPHEN
     Route: 065
     Dates: start: 20180608, end: 20180704
  12. TAVEGYL [Concomitant]
     Active Substance: CLEMASTINE FUMARATE
     Route: 065
     Dates: start: 20180626, end: 20180626
  13. SOLU-MEDROL [Concomitant]
     Active Substance: METHYLPREDNISOLONE SODIUM SUCCINATE
     Route: 065
     Dates: start: 20180626, end: 20180626
  14. SODIUM BICARBONATE. [Concomitant]
     Active Substance: SODIUM BICARBONATE
     Route: 065
     Dates: start: 20180613, end: 20180620
  15. DOLOPHINE [Concomitant]
     Active Substance: METHADONE HYDROCHLORIDE
     Route: 065
     Dates: start: 20180503, end: 20180803
  16. TOREM [TORASEMIDE] [Concomitant]
     Active Substance: TORSEMIDE
     Route: 065
     Dates: start: 20180627, end: 20180724
  17. ADRENALIN (EPINEPHRINE) [Concomitant]
     Active Substance: EPINEPHRINE
     Route: 065
     Dates: start: 20180613, end: 20180620

REACTIONS (1)
  - Pain [Not Recovered/Not Resolved]

NARRATIVE: CASE EVENT DATE: 20180721
